FAERS Safety Report 11046499 (Version 1)
Quarter: 2015Q2

REPORT INFORMATION
  Report Type: Spontaneous
  Country: US (occurrence: US)
  Receive Date: 20150420
  Receipt Date: 20150420
  Transmission Date: 20150821
  Serious: No
  Sender: FDA-Public Use
  Company Number: US-TEVA-482799USA

PATIENT
  Sex: Male

DRUGS (1)
  1. NICOTINIC ACID [Suspect]
     Active Substance: NIACIN
     Dosage: 2000 MILLIGRAM DAILY;
     Dates: start: 2012

REACTIONS (1)
  - Rhinorrhoea [Unknown]
